FAERS Safety Report 10643318 (Version 1)
Quarter: 2014Q4

REPORT INFORMATION
  Report Type: Spontaneous
  Country: US (occurrence: None)
  Receive Date: 20141121
  Receipt Date: 20141121
  Transmission Date: 20150529
  Serious: No
  Sender: FDA-Public Use
  Company Number: 163-10004-14081134

PATIENT
  Age: 72 Year
  Sex: Male

DRUGS (9)
  1. LYRICA [Concomitant]
     Active Substance: PREGABALIN
  2. LISINOPRIL (LISINOPRIL) [Concomitant]
     Active Substance: LISINOPRIL
  3. OXYCODONE (OXYCODONE) [Concomitant]
     Active Substance: OXYCODONE
  4. WARFARIN (WARFARIN) [Concomitant]
     Active Substance: WARFARIN
  5. OTEZLA [Suspect]
     Active Substance: APREMILAST
     Indication: PSORIATIC ARTHROPATHY
     Dosage: 60 MG,  2 IN 1 D,  PO
     Route: 048
     Dates: start: 20140429, end: 20140802
  6. CYMBALTA [Concomitant]
     Active Substance: DULOXETINE HYDROCHLORIDE
  7. PREDNISONE (PREDNISONE) [Concomitant]
     Active Substance: PREDNISONE
  8. FLOMAX [Concomitant]
     Active Substance: TAMSULOSIN HYDROCHLORIDE
  9. IMMUNOGLOBULIN (UNKNOWN) [Concomitant]

REACTIONS (1)
  - Diarrhoea [None]

NARRATIVE: CASE EVENT DATE: 20140730
